FAERS Safety Report 5580797-8 (Version None)
Quarter: 2007Q4

REPORT INFORMATION
  Report Type: 
  Country: None (occurrence: None)
  Receive Date: 20071130
  Receipt Date: 20070716
  Transmission Date: 20080405
  Serious: No
  Sender: FDA-Public Use
  Company Number: US200707004097

PATIENT
  Age: 56 Year
  Sex: Male
  Weight: 127.4 kg

DRUGS (8)
  1. BYETTA [Suspect]
     Dosage: 5 UG, 2/D, SUBCUTANEOUS
     Route: 058
     Dates: start: 20070705
  2. BUMETANIDE [Concomitant]
  3. LISINOPRIL [Concomitant]
  4. LOTREL [Concomitant]
  5. LORTAB [Concomitant]
  6. PAXIL [Concomitant]
  7. XANAX [Concomitant]
  8. NEXIUM [Concomitant]

REACTIONS (3)
  - BLOOD GLUCOSE INCREASED [None]
  - DECREASED APPETITE [None]
  - WEIGHT DECREASED [None]
